FAERS Safety Report 8119126-4 (Version None)
Quarter: 2012Q1

REPORT INFORMATION
  Report Type: 
  Country: None (occurrence: None)
  Receive Date: 20120207
  Receipt Date: 20120207
  Transmission Date: 20120608
  Serious: Yes (Death)
  Sender: FDA-Public Use
  Company Number: None

PATIENT
  Sex: Male
  Weight: 102.7 kg

DRUGS (18)
  1. PROPOFOL [Concomitant]
  2. ALBUTEROL [Concomitant]
  3. INTEGRILIN [Concomitant]
     Dosage: 2 MCG/KG/MIN
     Route: 041
     Dates: start: 20120113, end: 20120113
  4. CALCIUM GLUCONATE [Concomitant]
  5. EPINEPHRINE [Concomitant]
  6. FUROSEMIDE [Concomitant]
  7. MAGNESIUM [Concomitant]
  8. NOREPINEPHRINE BITARTRATE [Concomitant]
  9. FLOLAN [Concomitant]
  10. IPRATROPIUM BROMIDE [Concomitant]
  11. VASOPRESSIN [Concomitant]
  12. INSULIN [Concomitant]
  13. METHYLPREDNISOLONE [Concomitant]
  14. INTEGRILIN [Suspect]
     Indication: ACUTE MYOCARDIAL INFARCTION
     Dosage: 180 MCG/KG X 2 DOSES
     Route: 040
     Dates: start: 20120113, end: 20120113
  15. FENTANYL CITRATE [Concomitant]
  16. CISATRACURIUM BESYLATE [Concomitant]
  17. HYDROCORTISONE [Concomitant]
  18. MILRINONE [Concomitant]
     Indication: MYOCARDIAL INFARCTION

REACTIONS (8)
  - PYREXIA [None]
  - CARDIOGENIC SHOCK [None]
  - PULMONARY ALVEOLAR HAEMORRHAGE [None]
  - VENTRICULAR TACHYCARDIA [None]
  - BLOOD CULTURE POSITIVE [None]
  - URINE OUTPUT DECREASED [None]
  - THROMBOCYTOPENIA [None]
  - PERIPHERAL ISCHAEMIA [None]
